FAERS Safety Report 9476672 (Version 1)
Quarter: 2013Q3

REPORT INFORMATION
  Report Type: Spontaneous
  Country: US (occurrence: US)
  Receive Date: 20130826
  Receipt Date: 20130826
  Transmission Date: 20140515
  Serious: No
  Sender: FDA-Public Use
  Company Number: US-BRISTOL-MYERS SQUIBB COMPANY-18995225

PATIENT
  Sex: Female

DRUGS (1)
  1. KENALOG INJ [Suspect]
     Indication: BURSITIS
     Dosage: 1.5 MONTHS AGO LAST INJ

REACTIONS (2)
  - Asthenia [Not Recovered/Not Resolved]
  - Drug ineffective [Unknown]
